FAERS Safety Report 23557636 (Version 1)
Quarter: 2024Q1

REPORT INFORMATION
  Report Type: Report from Study
  Country: IT (occurrence: IT)
  Receive Date: 20240223
  Receipt Date: 20240223
  Transmission Date: 20240410
  Serious: Yes (Other)
  Sender: FDA-Public Use
  Company Number: None

PATIENT
  Age: 2 Year
  Sex: Male
  Weight: 12 kg

DRUGS (6)
  1. VINCRISTINE [Suspect]
     Active Substance: VINCRISTINE
     Indication: B-cell type acute leukaemia
     Dosage: 0.82 MG/DAY ON 29/11, 06, 13, 20/12/2023, VINCRISTINA TEVA ITALY
     Route: 042
     Dates: start: 20231129, end: 20231220
  2. PREDNISONE [Concomitant]
     Active Substance: PREDNISONE
     Indication: B-cell type acute leukaemia
     Dosage: 32.5 MG/DAY FROM 11/28 TO 12/19/2023?15 MG/DAY FROM 12/20 TO 12/22/2023?7.5 MG/DAY FROM 12/23 TO ...
     Route: 048
     Dates: start: 20231128
  3. DAUNORUBICIN HYDROCHLORIDE [Suspect]
     Active Substance: DAUNORUBICIN HYDROCHLORIDE
     Indication: B-cell type acute leukaemia
     Dosage: 16 MG/DAY ON 29/11, 06, 13, 20/12/2023
     Route: 042
     Dates: start: 20231129, end: 20231220
  4. LANSOPRAZOLE [Concomitant]
     Active Substance: LANSOPRAZOLE
     Indication: Prophylaxis against gastrointestinal ulcer
     Dosage: 15 MG/DAY
     Route: 048
     Dates: start: 20231224
  5. ONCASPAR [Suspect]
     Active Substance: PEGASPARGASE
     Indication: B-cell type acute leukaemia
     Dosage: 1360 UI ON 04, 18/12/2023
     Route: 042
     Dates: start: 20231204, end: 20231218
  6. PANTOPRAZOLE [Concomitant]
     Active Substance: PANTOPRAZOLE
     Indication: Prophylaxis against gastrointestinal ulcer
     Dosage: 10 MG/DAY, SUN PHARMA
     Route: 042
     Dates: start: 20231128, end: 20231223

REACTIONS (2)
  - Neutropenia [Recovering/Resolving]
  - Leukopenia [Recovering/Resolving]

NARRATIVE: CASE EVENT DATE: 20231216
